FAERS Safety Report 4768427-6 (Version None)
Quarter: 2005Q3

REPORT INFORMATION
  Report Type: 
  Country: None (occurrence: None)
  Receive Date: 20050914
  Receipt Date: 20050902
  Transmission Date: 20060218
  Serious: Yes (Hospitalization)
  Sender: FDA-Public Use
  Company Number: FR-ROCHE-416467

PATIENT
  Age: 15 Year
  Sex: Female
  Weight: 39 kg

DRUGS (11)
  1. ROVALCYTE [Suspect]
     Indication: DRUG USE FOR UNKNOWN INDICATION
     Route: 048
     Dates: start: 20050415, end: 20050804
  2. BACTRIM [Suspect]
     Indication: DRUG USE FOR UNKNOWN INDICATION
     Route: 048
     Dates: start: 20050515
  3. NEORAL [Suspect]
     Indication: DRUG USE FOR UNKNOWN INDICATION
     Route: 048
     Dates: start: 20050319, end: 20050803
  4. CORTANCYL [Suspect]
     Indication: DRUG USE FOR UNKNOWN INDICATION
     Route: 048
     Dates: start: 20050319
  5. ASPEGIC 325 [Suspect]
     Indication: DRUG USE FOR UNKNOWN INDICATION
     Route: 048
     Dates: start: 20050515
  6. CELLCEPT [Concomitant]
     Dates: start: 20050319, end: 20050708
  7. SPECIAFOLDINE [Concomitant]
     Dates: start: 20050515, end: 20050715
  8. LEDERFOLINE [Concomitant]
     Dates: start: 20050715
  9. INIPOMP [Concomitant]
  10. TAHOR [Concomitant]
  11. TRIATEC [Concomitant]
     Dosage: DRUG NAME STATED AS TRIATIC.

REACTIONS (3)
  - HEADACHE [None]
  - INTRACRANIAL PRESSURE INCREASED [None]
  - PAPILLOEDEMA [None]
